FAERS Safety Report 7415646-6 (Version None)
Quarter: 2011Q2

REPORT INFORMATION
  Report Type: 
  Country: None (occurrence: None)
  Receive Date: 20110414
  Receipt Date: 20110411
  Transmission Date: 20111010
  Serious: Yes (Hospitalization, Disabling, Other)
  Sender: FDA-Public Use
  Company Number: US-PFIZER INC-2011014277

PATIENT
  Sex: Female

DRUGS (7)
  1. LYRICA [Concomitant]
     Indication: NEURALGIA
     Dosage: UNK
     Dates: start: 20060101, end: 20080101
  2. XANAX [Concomitant]
     Indication: ANXIETY
  3. OXYCODONE [Concomitant]
     Indication: BACK PAIN
     Dosage: UNK
     Dates: start: 20010101
  4. CHANTIX [Suspect]
     Indication: SMOKING CESSATION THERAPY
     Dosage: STARTER MONTH PACK AND CONTINUING MONTH PACK
     Dates: start: 20061101, end: 20070101
  5. XANAX [Concomitant]
     Indication: IRRITABLE BOWEL SYNDROME
     Dosage: UNK
     Dates: start: 20020101
  6. ZOLOFT [Concomitant]
     Indication: DEPRESSION
     Dosage: UNK
     Dates: start: 20020101, end: 20090101
  7. TRAZODONE [Concomitant]
     Indication: DEPRESSION
     Dosage: UNK
     Dates: start: 20060101, end: 20080101

REACTIONS (7)
  - GENERALISED ANXIETY DISORDER [None]
  - PANIC ATTACK [None]
  - LOSS OF CONSCIOUSNESS [None]
  - BACK PAIN [None]
  - MAJOR DEPRESSION [None]
  - GRAND MAL CONVULSION [None]
  - CEREBRAL INFARCTION [None]
